FAERS Safety Report 4811713-1 (Version None)
Quarter: 2005Q4

REPORT INFORMATION
  Report Type: 
  Country: None (occurrence: None)
  Receive Date: 20051025
  Receipt Date: 20051012
  Transmission Date: 20060501
  Serious: Yes (Disabling)
  Sender: FDA-Public Use
  Company Number: 2005135512

PATIENT
  Age: 68 Year
  Sex: Female

DRUGS (8)
  1. LYRICA [Suspect]
     Indication: SPINAL CORD INJURY
     Dosage: 150 MG (75 MG, 2 IN 1 D), ORAL
     Route: 048
     Dates: start: 20050801, end: 20050901
  2. BACLOFEN [Concomitant]
  3. TOPAMAX [Concomitant]
  4. TRILEPTAL [Concomitant]
  5. MACRODANTIN [Concomitant]
  6. NEURONTIN [Concomitant]
  7. GLUCOSAMINE (GLUCOSAMINE) [Concomitant]
  8. METHYCOBAL (MECOBALAMIN) [Concomitant]

REACTIONS (1)
  - MUSCLE SPASTICITY [None]
